FAERS Safety Report 4626828-0 (Version None)
Quarter: 2005Q2

REPORT INFORMATION
  Report Type: 
  Country: None (occurrence: None)
  Receive Date: 20050401
  Receipt Date: 20050401
  Transmission Date: 20051028
  Serious: No
  Sender: FDA-Public Use
  Company Number: None

PATIENT
  Sex: Male
  Weight: 80.8 kg

DRUGS (5)
  1. DAUNOMYCIN [Suspect]
     Dosage: 60 MG/M2 IVP ON DAYS 1,8,15 AND 22
     Route: 042
     Dates: start: 20050325
  2. VINCRISTINE SULFATE [Suspect]
     Dosage: 1.4 MG/M2 IVP ON DAYS 1,8,15 AND 22 (NOTE: MAXIMUM DOSE 2 MG)
     Route: 042
  3. PREDNISONE [Suspect]
     Dosage: 60 MG/M2 PO QD FOR 28 DAYS
     Route: 048
  4. ELSPAR [Suspect]
     Dosage: 10000 UNIT/M2 IV OVER 30 MIN QD ON DAYS 17-28
     Route: 042
  5. METHOTREXATE [Suspect]
     Dosage: 12.5 MG IT ON DAY 15 ONLY UNLESS PT RECEIVED TREATMENT FOR CNS LEUKEMIA

REACTIONS (2)
  - DIALYSIS [None]
  - TUMOUR LYSIS SYNDROME [None]
